FAERS Safety Report 6408341-3 (Version None)
Quarter: 2009Q4

REPORT INFORMATION
  Report Type: 
  Country: None (occurrence: None)
  Receive Date: 20091021
  Receipt Date: 20091015
  Transmission Date: 20100525
  Serious: Yes (Hospitalization)
  Sender: FDA-Public Use
  Company Number: PHHO2006US11130

PATIENT
  Sex: Male
  Weight: 82.5 kg

DRUGS (3)
  1. RAD 666 RAD+TAB+PTR [Suspect]
     Indication: RENAL TRANSPLANT
     Dosage: 1.0 MG DAILY
     Route: 048
     Dates: start: 20060414
  2. RAD 666 RAD+TAB+PTR [Suspect]
     Dosage: 0.5 MG, BID
     Dates: start: 20060414
  3. NEORAL [Concomitant]
     Indication: RENAL TRANSPLANT
     Dosage: 75 MG, BID
     Route: 048
     Dates: start: 20060414

REACTIONS (20)
  - BACTERAEMIA [None]
  - BENIGN PROSTATIC HYPERPLASIA [None]
  - BLOOD CREATININE INCREASED [None]
  - BLOOD CULTURE POSITIVE [None]
  - CATHETERISATION CARDIAC [None]
  - CULTURE URINE POSITIVE [None]
  - DISEASE PROGRESSION [None]
  - DYSURIA [None]
  - HAEMATURIA [None]
  - HAEMORRHAGE URINARY TRACT [None]
  - HYDRONEPHROSIS [None]
  - NEPHROSTOMY TUBE PLACEMENT [None]
  - PSEUDOMONAS INFECTION [None]
  - PYREXIA [None]
  - RENAL FAILURE ACUTE [None]
  - RENAL HAEMATOMA [None]
  - TRANSURETHRAL PROSTATECTOMY [None]
  - URETERAL STENT INSERTION [None]
  - URINARY TRACT INFECTION [None]
  - UROSEPSIS [None]
